FAERS Safety Report 8008305-2 (Version None)
Quarter: 2011Q4

REPORT INFORMATION
  Report Type: 
  Country: None (occurrence: None)
  Receive Date: 20111227
  Receipt Date: 20111215
  Transmission Date: 20120403
  Serious: Yes (Hospitalization)
  Sender: FDA-Public Use
  Company Number: GB-ASTRAZENECA-2011SE75804

PATIENT
  Age: 81 Year
  Sex: Female

DRUGS (28)
  1. IRESSA [Suspect]
     Indication: LUNG NEOPLASM MALIGNANT
     Route: 048
     Dates: start: 20110730, end: 20110731
  2. ISOSORBIDE MONONITRATE [Concomitant]
     Route: 048
     Dates: start: 20110808
  3. LAXIDO [Concomitant]
  4. QUININE SULFATE [Concomitant]
     Route: 048
  5. CARBOCYSTEINE [Concomitant]
  6. CLOPIDOGREL [Concomitant]
     Route: 048
  7. ENOXAPARIN [Concomitant]
     Indication: ACUTE CORONARY SYNDROME
     Route: 058
     Dates: start: 20110731, end: 20110804
  8. FERROUS SULFATE TAB [Concomitant]
  9. FOLIC ACID [Concomitant]
  10. FUROSEMIDE [Concomitant]
     Route: 048
  11. PREGABALIN [Concomitant]
     Route: 048
  12. ASPIRIN [Concomitant]
     Route: 048
  13. DOCUSATE SODIUM [Concomitant]
     Route: 048
  14. FENTANYL [Concomitant]
  15. PREDNISOLONE [Concomitant]
  16. MIRTAZAPINE [Concomitant]
     Route: 048
  17. CHLORAMPHENICOL [Concomitant]
     Route: 061
  18. GLYCERYL TRINITRATE [Concomitant]
     Route: 060
  19. SENNA [Concomitant]
  20. TIOPRONIN [Concomitant]
     Route: 055
  21. OMEPRAZOLE [Concomitant]
     Route: 048
  22. FLUTICASONE PROPIONATE/SALMETEROL [Concomitant]
     Route: 055
  23. ADCAL-D3 [Concomitant]
     Route: 048
  24. ALENDRONIC ACID [Concomitant]
  25. BISOPROLOL FUMARATE [Concomitant]
     Dates: start: 20110801
  26. METHOTREXATE [Concomitant]
  27. MOVIPREP [Concomitant]
  28. ACETAMINOPHEN [Concomitant]

REACTIONS (2)
  - MYOCARDIAL INFARCTION [None]
  - LOWER RESPIRATORY TRACT INFECTION [None]
